FAERS Safety Report 5861832-6 (Version None)
Quarter: 2008Q3

REPORT INFORMATION
  Report Type: 
  Country: None (occurrence: None)
  Receive Date: 20080827
  Receipt Date: 20080722
  Transmission Date: 20090109
  Serious: No
  Sender: FDA-Public Use
  Company Number: US-ABBOTT-08P-163-0462467-00

PATIENT
  Sex: Male
  Weight: 71.732 kg

DRUGS (4)
  1. NIASPAN [Suspect]
     Indication: HIGH DENSITY LIPOPROTEIN DECREASED
     Route: 048
     Dates: start: 20080501
  2. EZETIMIBE [Concomitant]
     Indication: BLOOD CHOLESTEROL INCREASED
     Route: 048
  3. GENERIC NIACIN [Concomitant]
     Indication: BLOOD CHOLESTEROL
     Route: 048
  4. ATORVASTATIN CALCIUM [Concomitant]
     Indication: BLOOD CHOLESTEROL
     Route: 048

REACTIONS (2)
  - FLUSHING [None]
  - MEDICATION RESIDUE [None]
